FAERS Safety Report 7355461-5 (Version None)
Quarter: 2011Q1

REPORT INFORMATION
  Report Type: 
  Country: None (occurrence: None)
  Receive Date: 20110311
  Receipt Date: 20110311
  Transmission Date: 20110831
  Serious: Yes (Other)
  Sender: FDA-Public Use
  Company Number: None

PATIENT
  Sex: Female
  Weight: 63.5036 kg

DRUGS (2)
  1. METROGEL [Suspect]
     Indication: RASH
     Dosage: SMALL AMOUNT ONCE TOPICAL
     Route: 061
     Dates: start: 20110303
  2. METROGEL [Suspect]
     Indication: SWELLING
     Dosage: SMALL AMOUNT ONCE TOPICAL
     Route: 061
     Dates: start: 20110303

REACTIONS (4)
  - ABDOMINAL PAIN UPPER [None]
  - SWELLING [None]
  - HYPOAESTHESIA [None]
  - PRURITUS [None]
